FAERS Safety Report 22321595 (Version 2)
Quarter: 2023Q2

REPORT INFORMATION
  Report Type: Spontaneous
  Country: US (occurrence: US)
  Receive Date: 20230515
  Receipt Date: 20230617
  Transmission Date: 20230722
  Serious: No
  Sender: FDA-Public Use
  Company Number: US-JNJFOC-20230451791

PATIENT
  Sex: Female

DRUGS (1)
  1. MENS ROGAINE EXTRA STRENGTH [Suspect]
     Active Substance: MINOXIDIL
     Indication: Product used for unknown indication
     Route: 065

REACTIONS (6)
  - Product use issue [Unknown]
  - Intentional product misuse [Unknown]
  - Suspected counterfeit product [Unknown]
  - Product label issue [Unknown]
  - Product packaging issue [Unknown]
  - Product delivery mechanism issue [Unknown]
